FAERS Safety Report 7330837-0 (Version None)
Quarter: 2011Q1

REPORT INFORMATION
  Report Type: 
  Country: None (occurrence: None)
  Receive Date: 20110304
  Receipt Date: 20110301
  Transmission Date: 20110831
  Serious: No
  Sender: FDA-Public Use
  Company Number: US-PFIZER INC-2011045421

PATIENT
  Sex: Female
  Weight: 68.934 kg

DRUGS (12)
  1. PRINIVIL [Concomitant]
     Indication: HYPERTENSION
     Dosage: 20 MG, 1X/DAY
     Route: 048
  2. PRISTIQ [Suspect]
     Indication: ANXIETY
     Dosage: UNK
     Route: 048
     Dates: start: 20110201
  3. HYDROCHLOROTHIAZIDE [Concomitant]
     Indication: HYPERTENSION
     Dosage: 25 MG HALF A TABLET DAILY
  4. EVISTA [Concomitant]
     Indication: BONE DISORDER
     Dosage: 60 MG, 1X/DAY
     Route: 048
  5. ALLEGRA [Concomitant]
     Indication: HYPERSENSITIVITY
     Dosage: 180 MG, 1X/DAY
     Route: 048
  6. MULTI-VITAMINS [Concomitant]
     Dosage: UNK
  7. ZOCOR [Concomitant]
     Indication: BLOOD CHOLESTEROL INCREASED
     Dosage: 20 MG, 1X/DAY
     Route: 048
  8. PREVACID [Concomitant]
     Indication: GASTROOESOPHAGEAL REFLUX DISEASE
     Dosage: 30 MG, 1X/DAY
     Route: 048
  9. PAXIL [Concomitant]
     Indication: ANXIETY
     Dosage: 10 MG, UNK
     Route: 048
  10. LORTAB [Concomitant]
     Indication: BACK PAIN
     Dosage: 5/500
     Route: 048
  11. ACETYLSALICYLIC ACID [Concomitant]
     Dosage: UNK
  12. SYNTHROID [Concomitant]
     Indication: THYROID DISORDER
     Dosage: 112 UG, 1X/DAY
     Route: 048

REACTIONS (1)
  - PRURITUS [None]
